FAERS Safety Report 4731494-X (Version None)
Quarter: 2005Q3

REPORT INFORMATION
  Report Type: 
  Country: None (occurrence: None)
  Receive Date: 20050721
  Receipt Date: 20050401
  Transmission Date: 20060218
  Serious: Yes (Other)
  Sender: FDA-Public Use
  Company Number: 2005053416

PATIENT
  Age: 43 Year
  Sex: Female

DRUGS (2)
  1. RELPAX [Suspect]
     Indication: ILL-DEFINED DISORDER
     Dosage: 80 MG (40 MG, 2 IN 1 D), ORAL
     Route: 048
  2. BEXTRA [Suspect]
     Indication: ILL-DEFINED DISORDER
     Dosage: 20 MG, ORAL
     Route: 048

REACTIONS (3)
  - FACIAL SPASM [None]
  - MASKED FACIES [None]
  - MUSCLE SPASMS [None]
